FAERS Safety Report 8245431 (Version 2)
Quarter: 2017Q3

REPORT INFORMATION
  Report Type: Report from Study
  Country: DE (occurrence: DE)
  Receive Date: 20111115
  Receipt Date: 20170727
  Transmission Date: 20171128
  Serious: Yes (Hospitalization, Disabling, Other)
  Sender: FDA-Public Use
  Company Number: PHHO2007DE04415

PATIENT
  Age: 41 Year
  Sex: Female
  Weight: 75 kg

DRUGS (8)
  1. GILENYA [Suspect]
     Active Substance: FINGOLIMOD HYDROCHLORIDE
     Indication: MULTIPLE SCLEROSIS
     Dosage: 1.25 MG, QD
     Route: 048
     Dates: start: 20070222, end: 20070307
  2. FRAXIPARIN [Concomitant]
     Active Substance: NADROPARIN CALCIUM
  3. CARBAMAZEPINE. [Concomitant]
     Active Substance: CARBAMAZEPINE
  4. URBASON [Concomitant]
     Active Substance: METHYLPREDNISOLONE
  5. PANTOZOL [Concomitant]
     Active Substance: PANTOPRAZOLE SODIUM
  6. ASA [Concomitant]
     Active Substance: ASPIRIN
  7. HEPARIN [Concomitant]
     Active Substance: HEPARIN SODIUM
  8. TEGRETOL [Concomitant]
     Active Substance: CARBAMAZEPINE

REACTIONS (20)
  - Pulse absent [Recovering/Resolving]
  - Peripheral coldness [Recovered/Resolved]
  - Arterial spasm [Recovering/Resolving]
  - Arterial occlusive disease [Recovering/Resolving]
  - Raynaud^s phenomenon [Not Recovered/Not Resolved]
  - Blood pressure increased [Recovered/Resolved]
  - Hypoperfusion [Recovering/Resolving]
  - Necrosis [Recovering/Resolving]
  - Vasospasm [Not Recovered/Not Resolved]
  - Catheter placement [Recovering/Resolving]
  - Left ventricular dysfunction [Unknown]
  - Hypoaesthesia [Recovering/Resolving]
  - Skin discolouration [Recovering/Resolving]
  - Peripheral swelling [Recovering/Resolving]
  - Splinter haemorrhages [Recovering/Resolving]
  - Hypokinesia [Not Recovered/Not Resolved]
  - Stress [Recovered/Resolved]
  - Petechiae [Recovering/Resolving]
  - Peripheral artery thrombosis [Unknown]
  - Pain in extremity [Recovering/Resolving]

NARRATIVE: CASE EVENT DATE: 20070228
